FAERS Safety Report 18591253 (Version 2)
Quarter: 2021Q4

REPORT INFORMATION
  Report Type: Spontaneous
  Country: AR (occurrence: AR)
  Receive Date: 20201208
  Receipt Date: 20211119
  Transmission Date: 20220303
  Serious: Yes (Other)
  Sender: FDA-Public Use
  Company Number: AR-PFIZER INC-2020479263

PATIENT
  Age: 72 Year
  Sex: Female

DRUGS (3)
  1. AROMASIN [Suspect]
     Active Substance: EXEMESTANE
     Indication: Breast cancer female
     Dosage: 25 MG, DAILY
     Dates: start: 20180314
  2. AROMASIN [Suspect]
     Active Substance: EXEMESTANE
     Dosage: 25 MG, DAILY
     Dates: start: 20201120, end: 2020
  3. DICLOFENAC [Concomitant]
     Active Substance: DICLOFENAC

REACTIONS (8)
  - COVID-19 [Unknown]
  - COVID-19 pneumonia [Unknown]
  - Granuloma [Unknown]
  - Memory impairment [Unknown]
  - Fibromyalgia [Unknown]
  - Gastritis [Unknown]
  - Skin disorder [Unknown]
  - Feeling abnormal [Unknown]

NARRATIVE: CASE EVENT DATE: 20201001
